FAERS Safety Report 8833971 (Version 1)
Quarter: 2012Q4

REPORT INFORMATION
  Report Type: 
  Country: US (occurrence: US)
  Receive Date: 20121010
  Receipt Date: 20121010
  Transmission Date: 20130627
  Serious: Yes (Other)
  Sender: FDA-Public Use
  Company Number: US-ELI_LILLY_AND_COMPANY-US201210000169

PATIENT
  Sex: Male

DRUGS (3)
  1. CYMBALTA [Suspect]
     Indication: MAJOR DEPRESSION
     Dosage: 60 mg, qd
  2. CYMBALTA [Suspect]
     Dosage: 90 mg, qd
  3. CYMBALTA [Suspect]
     Dosage: 60 mg, qd

REACTIONS (2)
  - Deafness [Unknown]
  - Tinnitus [Unknown]
